FAERS Safety Report 8975909 (Version 2)
Quarter: 2013Q1

REPORT INFORMATION
  Report Type: Spontaneous
  Country: US (occurrence: US)
  Receive Date: 20121219
  Receipt Date: 20130123
  Transmission Date: 20140127
  Serious: Yes (Other)
  Sender: FDA-Public Use
  Company Number: US-VIIV HEALTHCARE LIMITED-A1005921A

PATIENT
  Age: 53 Year
  Sex: Male

DRUGS (1)
  1. SELZENTRY [Suspect]
     Dosage: 600MG TWICE PER DAY
     Route: 065
     Dates: start: 20090225

REACTIONS (1)
  - West Nile viral infection [Recovered/Resolved]
